FAERS Safety Report 7890077-3 (Version None)
Quarter: 2011Q4

REPORT INFORMATION
  Report Type: 
  Country: None (occurrence: None)
  Receive Date: 20111103
  Receipt Date: 20111028
  Transmission Date: 20120403
  Serious: Yes (Other)
  Sender: FDA-Public Use
  Company Number: DE-PFIZER INC-2011265162

PATIENT
  Age: 54 Year
  Sex: Female

DRUGS (1)
  1. ZITHROMAX [Suspect]
     Indication: LUNG INFECTION
     Dosage: UNK
     Dates: start: 20111001

REACTIONS (2)
  - OTITIS MEDIA [None]
  - OTOSALPINGITIS [None]
